FAERS Safety Report 9162566 (Version 1)
Quarter: 2013Q1

REPORT INFORMATION
  Report Type: Spontaneous
  Country: US (occurrence: None)
  Receive Date: 20130225
  Receipt Date: 20130225
  Transmission Date: 20140127
  Serious: No
  Sender: FDA-Public Use
  Company Number: IPC201302-000046

PATIENT
  Age: 18 Year
  Sex: Male

DRUGS (3)
  1. HYDROCHLOROTHIAZIDE [Suspect]
     Dosage: 25MG TWELVE TABLETS
  2. AMLODIPINE BESILATE [Suspect]
     Dosage: 5MG THIRTY TABLETS
  3. FLUNARIZINE [Suspect]
     Dosage: 10MG TWENTY FIVE TABLETS

REACTIONS (18)
  - Atrioventricular block [None]
  - Bundle branch block left [None]
  - Arrhythmia supraventricular [None]
  - Electrocardiogram PR prolongation [None]
  - Respiratory disorder [None]
  - Acute pulmonary oedema [None]
  - Paraesthesia [None]
  - Anuria [None]
  - Dizziness [None]
  - Vertigo [None]
  - Headache [None]
  - Bradycardia [None]
  - Tachypnoea [None]
  - Toxicity to various agents [None]
  - Hyperglycaemia [None]
  - Hypotension [None]
  - Intentional overdose [None]
  - Suicide attempt [None]
